FAERS Safety Report 5917428-0 (Version None)
Quarter: 2008Q4

REPORT INFORMATION
  Report Type: 
  Country: None (occurrence: None)
  Receive Date: 20081014
  Receipt Date: 20081010
  Transmission Date: 20090506
  Serious: Yes (Hospitalization)
  Sender: FDA-Public Use
  Company Number: B0541156A

PATIENT
  Age: 66 Year
  Sex: Male

DRUGS (7)
  1. VALTREX [Suspect]
     Indication: HERPES ZOSTER
     Dosage: 1000MG THREE TIMES PER DAY
     Route: 048
     Dates: start: 20080916, end: 20080919
  2. ZOVIRAX [Suspect]
     Indication: DRUG USE FOR UNKNOWN INDICATION
     Dosage: 250MG PER DAY
     Route: 042
     Dates: start: 20080919, end: 20080919
  3. DIOVAN [Suspect]
     Indication: DRUG USE FOR UNKNOWN INDICATION
     Dosage: 80MG PER DAY
     Route: 048
     Dates: end: 20080920
  4. LOXONIN [Suspect]
     Indication: DRUG USE FOR UNKNOWN INDICATION
     Dosage: 60MG TWICE PER DAY
     Route: 048
     Dates: end: 20080920
  5. ADALAT [Concomitant]
     Dosage: 40MG PER DAY
     Route: 048
  6. FLUITRAN [Concomitant]
     Dosage: 2MG PER DAY
     Route: 048
  7. ARTIST [Concomitant]
     Dosage: 2.5MG PER DAY
     Route: 048

REACTIONS (4)
  - NAUSEA [None]
  - PAIN [None]
  - RENAL TUBULAR NECROSIS [None]
  - VOMITING [None]
